FAERS Safety Report 4647802-4 (Version None)
Quarter: 2005Q2

REPORT INFORMATION
  Report Type: 
  Country: None (occurrence: None)
  Receive Date: 20050426
  Receipt Date: 20050413
  Transmission Date: 20051028
  Serious: Yes (Other)
  Sender: FDA-Public Use
  Company Number: 213224

PATIENT
  Age: 59 Year
  Sex: Female

DRUGS (4)
  1. RAPTIVA [Suspect]
     Indication: PSORIASIS
     Dosage: SBCONTANEOUS
     Route: 058
     Dates: start: 20040701
  2. NEOTIGASON (ACITRETIN) [Concomitant]
  3. SIMVASTATIN (SIMVASTATN) [Concomitant]
  4. TACROLIMUS (TACROLIMUS) [Concomitant]

REACTIONS (3)
  - DISEASE RECURRENCE [None]
  - HEPATITIS [None]
  - PUSTULAR PSORIASIS [None]
